FAERS Safety Report 9214569 (Version 2)
Quarter: 2014Q1

REPORT INFORMATION
  Report Type: Spontaneous
  Country: US (occurrence: US)
  Receive Date: 20130405
  Receipt Date: 20140108
  Transmission Date: 20141002
  Serious: Yes (Hospitalization, Other)
  Sender: FDA-Public Use
  Company Number: US-BAYER-2013-040677

PATIENT
  Age: 17 Year
  Sex: Female

DRUGS (10)
  1. YAZ [Suspect]
     Dosage: UNK
     Dates: start: 200806
  2. YASMIN [Suspect]
     Dosage: UNK
     Dates: start: 200806
  3. DICLOFENAC [Concomitant]
     Dosage: 50 MG, UNK
  4. VOLTAREN [Concomitant]
     Dosage: 1 UNK, UNK
  5. DOXYCYCLINE [Concomitant]
     Dosage: 100 MG, UNK
  6. MELOXICAM [Concomitant]
     Dosage: 15 MG, UNK
  7. NEXIUM [Concomitant]
     Dosage: 40 MG, UNK
  8. HYDROCODONE W/APAP [Concomitant]
     Dosage: 5-500MG
  9. PREDNISONE [Concomitant]
     Dosage: 10 MG, UNK
  10. PROMETHAZINE [Concomitant]
     Dosage: 25 MG, UNK

REACTIONS (5)
  - Gallbladder disorder [None]
  - Cholecystitis chronic [None]
  - Pain [None]
  - Injury [None]
  - Emotional distress [None]
